FAERS Safety Report 4874770-2 (Version None)
Quarter: 2006Q1

REPORT INFORMATION
  Report Type: 
  Country: None (occurrence: None)
  Receive Date: 20060104
  Receipt Date: 20051220
  Transmission Date: 20060701
  Serious: Yes (Hospitalization)
  Sender: FDA-Public Use
  Company Number: 2005172060

PATIENT
  Age: 80 Year
  Sex: Female

DRUGS (3)
  1. SULFASALAZINE [Suspect]
     Indication: POLYARTHRITIS
     Dosage: 500 M (500 MG, 1 IN 1 D), ORAL
     Route: 048
     Dates: start: 20051122, end: 20051202
  2. ATENOLOL [Concomitant]
  3. BENDROFLUAZIDE (BENDROFLUMETHAZIDE) [Concomitant]

REACTIONS (5)
  - ANOREXIA [None]
  - BLOOD PRESSURE DIASTOLIC DECREASED [None]
  - MALAISE [None]
  - PYREXIA [None]
  - RASH [None]
